FAERS Safety Report 5637024-2 (Version None)
Quarter: 2008Q1

REPORT INFORMATION
  Report Type: 
  Country: None (occurrence: None)
  Receive Date: 20080225
  Receipt Date: 20070530
  Transmission Date: 20080703
  Serious: No
  Sender: FDA-Public Use
  Company Number: US-BRISTOL-MYERS SQUIBB COMPANY-13797840

PATIENT
  Sex: Male

DRUGS (1)
  1. METFORMIN HCL [Suspect]

REACTIONS (4)
  - DISTURBANCE IN ATTENTION [None]
  - HYPERCHLORHYDRIA [None]
  - MEDICATION RESIDUE [None]
  - STOMACH DISCOMFORT [None]
